FAERS Safety Report 6576151-2 (Version None)
Quarter: 2010Q1

REPORT INFORMATION
  Report Type: 
  Country: None (occurrence: None)
  Receive Date: 20100209
  Receipt Date: 20100205
  Transmission Date: 20100710
  Serious: Yes (Other)
  Sender: FDA-Public Use
  Company Number: CHPA2010US02671

PATIENT
  Age: 68 Year
  Sex: Male
  Weight: 95.238 kg

DRUGS (1)
  1. 4 WAY FAST ACTING NASAL SPRAY (NCH) [Suspect]
     Indication: DYSPNOEA
     Dosage: 2 BOTTLES, QD
     Route: 045
     Dates: start: 20090101

REACTIONS (4)
  - DRUG DEPENDENCE [None]
  - INTENTIONAL DRUG MISUSE [None]
  - OFF LABEL USE [None]
  - OVERDOSE [None]
